FAERS Safety Report 4303447-7 (Version None)
Quarter: 2004Q1

REPORT INFORMATION
  Report Type: 
  Country: None (occurrence: None)
  Receive Date: 20040223
  Receipt Date: 20030827
  Transmission Date: 20041129
  Serious: Yes (Death)
  Sender: FDA-Public Use
  Company Number: A01200303982

PATIENT
  Age: 34 Year
  Sex: Female

DRUGS (5)
  1. STILNOX- (ZOLPIDEM) TABLET [Suspect]
     Indication: INSOMNIA
     Dosage: 30 MG ORAL
     Route: 048
     Dates: end: 20030305
  2. EFFEXOR [Concomitant]
  3. DIAZEPAM [Concomitant]
  4. PROTHIADEN [Concomitant]
  5. MIDAZOLAM HCL [Concomitant]

REACTIONS (3)
  - FALL [None]
  - PRESCRIBED OVERDOSE [None]
  - SPINAL FRACTURE [None]
